FAERS Safety Report 26091494 (Version 1)
Quarter: 2025Q4

REPORT INFORMATION
  Report Type: Spontaneous
  Country: CN (occurrence: CN)
  Receive Date: 20251126
  Receipt Date: 20251126
  Transmission Date: 20260118
  Serious: Yes (Death, Other)
  Sender: AMNEAL
  Company Number: CN-AMNEAL PHARMACEUTICALS-2025-AMRX-04567

PATIENT
  Age: 48 Year
  Sex: Female

DRUGS (8)
  1. ALYMSYS [Suspect]
     Active Substance: BEVACIZUMAB-MALY
     Indication: Pericardial effusion malignant
     Dosage: 300 MILLIGRAM, FIRST DOSE
     Route: 032
     Dates: start: 20210401
  2. ALYMSYS [Suspect]
     Active Substance: BEVACIZUMAB-MALY
     Dosage: 200 MILLIGRAM, SECOND DOSE
     Route: 032
     Dates: start: 20211210
  3. PEMETREXED [Concomitant]
     Active Substance: PEMETREXED
     Indication: Pericardial effusion malignant
     Dosage: SIX CYCLES OF FIRST-LINE THERAPY
     Route: 065
     Dates: start: 20210408, end: 20210817
  4. PEMETREXED [Concomitant]
     Active Substance: PEMETREXED
     Dosage: UNK
     Route: 065
     Dates: start: 20211114
  5. CISPLATIN [Concomitant]
     Active Substance: CISPLATIN
     Indication: Product used for unknown indication
     Dosage: SIX CYCLES OF FIRST-LINE THERAPY
     Route: 065
     Dates: start: 20210408, end: 20210817
  6. CAMRELIZUMAB [Concomitant]
     Active Substance: CAMRELIZUMAB
     Indication: Pericardial effusion malignant
     Dosage: SIX CYCLES OF FIRST-LINE THERAPY
     Route: 065
     Dates: start: 20210408, end: 20210817
  7. CAMRELIZUMAB [Concomitant]
     Active Substance: CAMRELIZUMAB
     Dosage: THREE CYCLES OF MAINTENANCE THERAPY
     Route: 065
     Dates: start: 20210909, end: 20211022
  8. SINTILIMAB [Concomitant]
     Active Substance: SINTILIMAB
     Indication: Pericardial effusion malignant
     Dosage: UNK
     Route: 065
     Dates: start: 20211114

REACTIONS (2)
  - Respiratory failure [Fatal]
  - Cardiotoxicity [Recovering/Resolving]

NARRATIVE: CASE EVENT DATE: 20211211
